FAERS Safety Report 13514623 (Version 2)
Quarter: 2017Q2

REPORT INFORMATION
  Report Type: Spontaneous
  Country: GB (occurrence: GB)
  Receive Date: 20170504
  Receipt Date: 20170626
  Transmission Date: 20170830
  Serious: Yes (Life-Threatening, Hospitalization, Other)
  Sender: FDA-Public Use
  Company Number: PHFR2017GB003047

PATIENT
  Age: 5 Year
  Sex: Female

DRUGS (1)
  1. EXJADE [Suspect]
     Active Substance: DEFERASIROX
     Indication: THALASSAEMIA
     Dosage: 500 MG, UNK
     Route: 048
     Dates: start: 201401, end: 201704

REACTIONS (5)
  - Abdominal pain [Unknown]
  - Vomiting [Unknown]
  - Pneumoperitoneum [Unknown]
  - Gastric perforation [Recovered/Resolved]
  - Nausea [Unknown]

NARRATIVE: CASE EVENT DATE: 20170413
